FAERS Safety Report 16786459 (Version 1)
Quarter: 2019Q4

REPORT INFORMATION
  Report Type: Spontaneous
  Country: US (occurrence: US)
  Receive Date: 20190906
  Receipt Date: 20190906
  Transmission Date: 20200122
  Serious: Yes (Hospitalization, Other)
  Sender: FDA-Public Use
  Company Number: None

PATIENT
  Sex: Female

DRUGS (1)
  1. OXYBUTYNIN. [Suspect]
     Active Substance: OXYBUTYNIN CHLORIDE
     Route: 048

REACTIONS (3)
  - Allergic reaction to excipient [None]
  - Lactose intolerance [None]
  - Pharyngeal swelling [None]

NARRATIVE: CASE EVENT DATE: 19430725
